FAERS Safety Report 7249066-4 (Version None)
Quarter: 2011Q1

REPORT INFORMATION
  Report Type: 
  Country: None (occurrence: None)
  Receive Date: 20110121
  Receipt Date: 20110121
  Transmission Date: 20110831
  Serious: Yes (Hospitalization)
  Sender: FDA-Public Use
  Company Number: None

PATIENT
  Age: 32 Year
  Sex: Female
  Weight: 102.5129 kg

DRUGS (1)
  1. MAJOR ALCHOHOL PREP PADS 70 % ISOPROPYL ALCHOHOL TRIAD GROUP, INC. [Suspect]
     Indication: INJECTION
     Dosage: 6/DAY IV
     Route: 042
     Dates: start: 20101208, end: 20110118

REACTIONS (1)
  - INFECTION [None]
